FAERS Safety Report 9344527 (Version 2)
Quarter: 2013Q3

REPORT INFORMATION
  Report Type: Spontaneous
  Country: US (occurrence: US)
  Receive Date: 20130612
  Receipt Date: 20130703
  Transmission Date: 20140515
  Serious: Yes (Hospitalization)
  Sender: FDA-Public Use
  Company Number: US-GILEAD-2013-0076817

PATIENT
  Sex: Female

DRUGS (25)
  1. LETAIRIS [Suspect]
     Indication: PULMONARY ARTERIAL HYPERTENSION
     Dosage: 10 MG, QD
     Route: 048
     Dates: start: 20080211
  2. CALCIUM + VITAMIN D                /01483701/ [Concomitant]
     Dosage: UNK
     Dates: start: 20130405
  3. POTASSIUM CHLORIDE HOSEI OTSUKA [Concomitant]
     Dosage: 20 MEQ, QD
     Route: 048
     Dates: start: 20130325
  4. METOPROLOL TARTRATE [Concomitant]
     Dosage: 12.5 MG, BID
     Route: 048
     Dates: start: 20130325
  5. BACITRAC.ZN/HYDROCORT./NEOMYC./POLYMYX.B.SULF [Concomitant]
     Dosage: 1 DF, TID PRN NOSEBLEED
     Route: 062
     Dates: start: 20130325
  6. ALBUTEROL W/IPRATROPIUM [Concomitant]
     Dosage: 2 DF, TID
     Route: 055
     Dates: start: 20130325
  7. TYVASO [Concomitant]
     Dosage: 3-6 PUFFS (DF), QID
     Route: 055
     Dates: start: 20130319
  8. NORCO [Concomitant]
     Dosage: 1 DF, Q 4 HR PRN
     Dates: start: 20130213
  9. POLYETHYLENE GLYCOL [Concomitant]
     Dosage: 17 G QD, PRN
     Route: 048
     Dates: start: 20130211
  10. OCEAN [Concomitant]
     Dosage: 1 SPARY (DF) PER NOSTRIL, TID
     Route: 045
     Dates: start: 20130107
  11. SPIRONOLACTONE [Concomitant]
     Dosage: 25 MG, QD
     Route: 048
     Dates: start: 20121208
  12. ADCIRCA [Concomitant]
     Dosage: 80 MG, QD
     Route: 048
     Dates: start: 20120815
  13. CALCITRIOL [Concomitant]
     Dosage: .25 ?G, QD
     Route: 048
  14. PRILOSEC                           /00661201/ [Concomitant]
     Dosage: 20 MG, QD
     Route: 048
     Dates: start: 20120709
  15. TORSEMIDE [Concomitant]
     Dosage: 50 MG, BID
     Route: 048
  16. ALLOPURINOL [Concomitant]
     Dosage: 100 MG, QD
     Route: 048
  17. ARANESP [Concomitant]
     Dosage: UNK, PRN
  18. AVASTIN                            /00848101/ [Concomitant]
     Dosage: UNK, Q3WK
     Route: 042
  19. NIFEDIPINE [Concomitant]
  20. LASIX                              /00032601/ [Concomitant]
     Dosage: 250 MG OVER 25 HOURS, Q1WK
     Route: 042
  21. LASIX                              /00032601/ [Concomitant]
     Dosage: 250 MG, UNK
  22. OXYGEN [Concomitant]
  23. TYLENOL                            /00020001/ [Concomitant]
     Dosage: 650 MG Q 6 HR, PRN
  24. COMBIVENT [Concomitant]
     Dosage: 2 DF, TID
     Route: 055
  25. ZAROXOLYN [Concomitant]

REACTIONS (2)
  - Lower gastrointestinal haemorrhage [Unknown]
  - Anaemia [Unknown]
